FAERS Safety Report 9483934 (Version 2)
Quarter: 2013Q3

REPORT INFORMATION
  Report Type: Report from Study
  Country: US (occurrence: US)
  Receive Date: 20130828
  Receipt Date: 20130828
  Transmission Date: 20140515
  Serious: Yes (Hospitalization)
  Sender: FDA-Public Use
  Company Number: PHHO2009US10857

PATIENT
  Age: 63 Year
  Sex: Male
  Weight: 125 kg

DRUGS (1)
  1. ALISKIREN [Suspect]
     Indication: CARDIOVASCULAR DISORDER
     Dosage: 300 MG, UNK
     Route: 048
     Dates: start: 20080305

REACTIONS (3)
  - Cholecystitis infective [Recovered/Resolved]
  - Cholecystitis [Recovered/Resolved]
  - Concomitant disease progression [Recovered/Resolved]
